FAERS Safety Report 9628535 (Version 1)
Quarter: 2013Q4

REPORT INFORMATION
  Report Type: Report from Study
  Country: MX (occurrence: MX)
  Receive Date: 20131017
  Receipt Date: 20131017
  Transmission Date: 20140711
  Serious: Yes (Other)
  Sender: FDA-Public Use
  Company Number: MX-SHIRE-ALL1-2013-06948

PATIENT
  Sex: Female
  Weight: 55.5 kg

DRUGS (22)
  1. BLINDED 489 (LISDEXAMFETAMINE DIMESYLATE) [Suspect]
     Indication: MAJOR DEPRESSION
     Dosage: UNK, 1X/DAY:QD
     Route: 048
     Dates: end: 20131002
  2. BLINDED DULOXETINE HYDROCHLORIDE [Suspect]
     Indication: MAJOR DEPRESSION
     Dosage: UNK, 1X/DAY:QD
     Route: 048
     Dates: end: 20131002
  3. BLINDED ESCITALOPRAM OXALATE [Suspect]
     Indication: MAJOR DEPRESSION
     Dosage: UNK, 1X/DAY:QD
     Route: 048
     Dates: end: 20131002
  4. BLINDED PLACEBO [Suspect]
     Indication: MAJOR DEPRESSION
     Dosage: UNK, 1X/DAY:QD
     Route: 048
     Dates: end: 20131002
  5. BLINDED SERTRALINE HYDROCHLORIDE [Suspect]
     Indication: MAJOR DEPRESSION
     Dosage: UNK, 1X/DAY:QD
     Route: 048
     Dates: end: 20131002
  6. BLINDED VENLAFAXINE HYDROCHLORIDE [Suspect]
     Indication: MAJOR DEPRESSION
     Dosage: UNK, 1X/DAY:QD
     Route: 048
     Dates: end: 20131002
  7. DULOXETINE HYDROCHLORIDE [Suspect]
     Indication: MAJOR DEPRESSION
     Dosage: 90 MG, 2X/DAY:BID
     Route: 048
     Dates: start: 20130626
  8. DULOXETINE HYDROCHLORIDE [Suspect]
     Dosage: 60 MG, 2X/DAY:BID
     Route: 048
     Dates: start: 20130612, end: 20130625
  9. KETOROLAC [Concomitant]
     Indication: MUSCULOSKELETAL CHEST PAIN
     Dosage: UNK, UNKNOWN
     Route: 065
     Dates: start: 20130605, end: 20130609
  10. NEO MELUBRINA [Concomitant]
     Indication: HEADACHE
     Dosage: UNK, UNKNOWN
     Route: 065
     Dates: start: 20130613, end: 20130613
  11. NEO MELUBRINA [Concomitant]
     Dosage: UNK, UNKNOWN
     Route: 065
     Dates: start: 20130804, end: 20130806
  12. NEO MELUBRINA [Concomitant]
     Dosage: UNK, UNKNOWN
     Route: 065
     Dates: start: 20130808, end: 20130808
  13. NEO MELUBRINA [Concomitant]
     Dosage: UNK, UNKNOWN
     Route: 065
     Dates: start: 20130825, end: 20130826
  14. NEO MELUBRINA [Concomitant]
     Dosage: UNK, UNKNOWN
     Route: 065
     Dates: start: 20130915, end: 20130915
  15. NEO MELUBRINA [Concomitant]
     Dosage: UNK, UNKNOWN
     Route: 065
     Dates: start: 20130917, end: 20130917
  16. NEO MELUBRINA [Concomitant]
     Dosage: UNK, UNKNOWN
     Route: 065
     Dates: start: 20130924, end: 20130924
  17. NEO MELUBRINA [Concomitant]
     Dosage: UNK, UNKNOWN
     Route: 065
     Dates: start: 20130926, end: 20130927
  18. NEO MELUBRINA [Concomitant]
     Dosage: UNK UNK, UNKNOWN
     Route: 065
     Dates: start: 20130929, end: 20130929
  19. NEO MELUBRINA [Concomitant]
     Dosage: UNK, UNKNOWN
     Route: 065
     Dates: start: 20131007, end: 20131007
  20. PARACETAMOL [Concomitant]
     Indication: HEADACHE
     Dosage: UNK, UNKNOWN
     Route: 065
     Dates: start: 20130713, end: 20130713
  21. NEPAFENAC [Concomitant]
     Indication: VISUAL IMPAIRMENT
     Dosage: UNK, UNKNOWN
     Route: 065
     Dates: start: 20130726, end: 20130914
  22. TIMOLOL [Concomitant]
     Indication: VISUAL IMPAIRMENT
     Dosage: UNK, UNKNOWN
     Route: 065
     Dates: start: 20130925

REACTIONS (1)
  - Glaucoma [Not Recovered/Not Resolved]
